FAERS Safety Report 14759376 (Version 20)
Quarter: 2025Q2

REPORT INFORMATION
  Report Type: Spontaneous
  Country: DE (occurrence: DE)
  Receive Date: 20180413
  Receipt Date: 20250616
  Transmission Date: 20250717
  Serious: Yes (Hospitalization, Other)
  Sender: Haleon PLC
  Company Number: DE-002147023-PHHY2018DE061478

PATIENT
  Age: 82 Year
  Sex: Female
  Weight: 56 kg

DRUGS (257)
  1. DICLOFENAC SODIUM [Suspect]
     Active Substance: DICLOFENAC SODIUM
     Indication: Product used for unknown indication
     Dosage: 2 DF, QD, 2 DOSAGE FORM, QD?FIRST AND LAST ADMIN DATE: 2016-10?ROUTE: UNKNOWN
     Dates: start: 201610, end: 201610
  2. DICLOFENAC SODIUM [Suspect]
     Active Substance: DICLOFENAC SODIUM
     Dosage: 2 DF, QD, 2 DOSAGE FORM, QD?FIRST ADMIN DATE: 2016-10?ROUTE: UNKNOWN
  3. FENTANYL TRANSDERMAL SYSTEM [Suspect]
     Active Substance: FENTANYL
     Indication: Product used for unknown indication
     Dosage: 75 MICROGRAM/HOUR AND PLASTER CHANGE EVERY 3 DAYS
     Route: 062
  4. FENTANYL TRANSDERMAL SYSTEM [Suspect]
     Active Substance: FENTANYL
     Route: 050
  5. FOLIC ACID [Concomitant]
     Active Substance: FOLIC ACID
     Indication: Product used for unknown indication
     Dates: start: 20170124
  6. FOLIC ACID [Concomitant]
     Active Substance: FOLIC ACID
     Dates: start: 20170124
  7. ENOXAPARIN [Concomitant]
     Active Substance: ENOXAPARIN
     Indication: Product used for unknown indication
     Dosage: 0.6 MG, QD
  8. ASPIRIN [Suspect]
     Active Substance: ASPIRIN
     Indication: Product used for unknown indication
     Route: 048
  9. DICLOFENAC [Suspect]
     Active Substance: DICLOFENAC
     Indication: Product used for unknown indication
     Dosage: UNK, QD?FIRST AND LAST ADMIN DATE: 2016-10?ROUTE: UNKNOWN
  10. DICLOFENAC [Suspect]
     Active Substance: DICLOFENAC
     Dosage: 2 DF, QD, 2 DOSAGE FORM, QD?FIRST AND LAST ADMIN DATE: 2016-10?ROUTE: UNKNOWN
     Dates: start: 201610, end: 201610
  11. DICLOFENAC [Suspect]
     Active Substance: DICLOFENAC
     Dosage: UNK, QD?FIRST AND LAST ADMIN DATE: 2016-10?ROUTE: UNKNOWN
  12. DICLOFENAC [Suspect]
     Active Substance: DICLOFENAC
     Dosage: UNK, QD?FIRST AND LAST ADMIN DATE: 2016-10?ROUTE: UNKNOWN
  13. XIPAMIDE [Suspect]
     Active Substance: XIPAMIDE
     Indication: Product used for unknown indication
     Dates: start: 20170124, end: 20170124
  14. XIPAMIDE [Suspect]
     Active Substance: XIPAMIDE
     Dates: end: 20170124
  15. XIPAMIDE [Suspect]
     Active Substance: XIPAMIDE
  16. LOSARTAN POTASSIUM [Suspect]
     Active Substance: LOSARTAN POTASSIUM
     Indication: Product used for unknown indication
     Dosage: 1 DOSAGE FORM, QD, QD (UNITS: UNKNOWN), DAILY
     Dates: start: 2016
  17. LOSARTAN POTASSIUM [Suspect]
     Active Substance: LOSARTAN POTASSIUM
  18. LOSARTAN POTASSIUM [Suspect]
     Active Substance: LOSARTAN POTASSIUM
  19. TORSEMIDE [Suspect]
     Active Substance: TORSEMIDE
     Indication: Product used for unknown indication
     Dosage: 15 MG, QD
     Dates: start: 20170124, end: 20170124
  20. TORSEMIDE [Suspect]
     Active Substance: TORSEMIDE
     Dosage: 5 MG, QD
     Dates: start: 20170124, end: 20170124
  21. TORSEMIDE [Suspect]
     Active Substance: TORSEMIDE
     Dosage: 5 MG, QD
  22. TORSEMIDE [Suspect]
     Active Substance: TORSEMIDE
     Dosage: 15 MG, QD
     Dates: start: 20170124, end: 20170124
  23. TORSEMIDE [Suspect]
     Active Substance: TORSEMIDE
  24. TORSEMIDE [Suspect]
     Active Substance: TORSEMIDE
     Dosage: 45 MG, QD
     Dates: start: 20170124, end: 20170124
  25. TORSEMIDE [Suspect]
     Active Substance: TORSEMIDE
     Dosage: 5 MG, QD
     Dates: start: 20170124, end: 20170124
  26. AMIODARONE HYDROCHLORIDE [Suspect]
     Active Substance: AMIODARONE HYDROCHLORIDE
     Indication: Product used for unknown indication
  27. AMIODARONE HYDROCHLORIDE [Suspect]
     Active Substance: AMIODARONE HYDROCHLORIDE
  28. CLOPIDOGREL [Suspect]
     Active Substance: CLOPIDOGREL BISULFATE
     Indication: Product used for unknown indication
     Dates: start: 20170124, end: 20170124
  29. CLOPIDOGREL [Suspect]
     Active Substance: CLOPIDOGREL BISULFATE
     Route: 048
     Dates: start: 20170124, end: 20170124
  30. CLOPIDOGREL [Suspect]
     Active Substance: CLOPIDOGREL BISULFATE
     Route: 048
     Dates: start: 20170124, end: 20170124
  31. CLOPIDOGREL [Suspect]
     Active Substance: CLOPIDOGREL BISULFATE
     Route: 048
  32. CLOPIDOGREL [Suspect]
     Active Substance: CLOPIDOGREL BISULFATE
     Dates: start: 20170124, end: 20170124
  33. CLOPIDOGREL [Suspect]
     Active Substance: CLOPIDOGREL BISULFATE
     Route: 048
  34. CLOPIDOGREL [Suspect]
     Active Substance: CLOPIDOGREL BISULFATE
     Dates: end: 20170124
  35. CLOPIDOGREL [Suspect]
     Active Substance: CLOPIDOGREL BISULFATE
     Route: 048
     Dates: end: 20170124
  36. CLOPIDOGREL [Suspect]
     Active Substance: CLOPIDOGREL BISULFATE
  37. CLOPIDOGREL [Suspect]
     Active Substance: CLOPIDOGREL BISULFATE
     Dates: end: 20170124
  38. CLOPIDOGREL [Suspect]
     Active Substance: CLOPIDOGREL BISULFATE
     Route: 048
     Dates: end: 20170124
  39. CLOPIDOGREL [Suspect]
     Active Substance: CLOPIDOGREL BISULFATE
     Route: 048
     Dates: end: 20170124
  40. CLOPIDOGREL [Suspect]
     Active Substance: CLOPIDOGREL BISULFATE
     Dates: end: 20170124
  41. CLOPIDOGREL [Suspect]
     Active Substance: CLOPIDOGREL BISULFATE
     Route: 048
     Dates: end: 20170124
  42. CLOPIDOGREL [Suspect]
     Active Substance: CLOPIDOGREL BISULFATE
  43. CLOPIDOGREL [Suspect]
     Active Substance: CLOPIDOGREL BISULFATE
     Route: 048
  44. CLOPIDOGREL [Suspect]
     Active Substance: CLOPIDOGREL BISULFATE
     Dates: end: 20170124
  45. CLOPIDOGREL [Suspect]
     Active Substance: CLOPIDOGREL BISULFATE
     Dates: end: 20170124
  46. CLOPIDOGREL [Suspect]
     Active Substance: CLOPIDOGREL BISULFATE
     Route: 048
  47. CLOPIDOGREL [Suspect]
     Active Substance: CLOPIDOGREL BISULFATE
     Dates: end: 20170124
  48. CLOPIDOGREL [Suspect]
     Active Substance: CLOPIDOGREL BISULFATE
     Route: 048
  49. LEVOSIMENDAN [Concomitant]
     Active Substance: LEVOSIMENDAN
     Indication: Product used for unknown indication
     Dates: start: 201611, end: 201611
  50. LEVOSIMENDAN [Concomitant]
     Active Substance: LEVOSIMENDAN
  51. LEVOSIMENDAN [Concomitant]
     Active Substance: LEVOSIMENDAN
  52. LEVOSIMENDAN [Concomitant]
     Active Substance: LEVOSIMENDAN
  53. LEVOSIMENDAN [Concomitant]
     Active Substance: LEVOSIMENDAN
  54. LEVOSIMENDAN [Concomitant]
     Active Substance: LEVOSIMENDAN
  55. LEVOSIMENDAN [Concomitant]
     Active Substance: LEVOSIMENDAN
  56. LEVOSIMENDAN [Concomitant]
     Active Substance: LEVOSIMENDAN
  57. LEVOSIMENDAN [Concomitant]
     Active Substance: LEVOSIMENDAN
  58. LEVOSIMENDAN [Concomitant]
     Active Substance: LEVOSIMENDAN
  59. LEVOSIMENDAN [Concomitant]
     Active Substance: LEVOSIMENDAN
  60. FOLIC ACID [Concomitant]
     Active Substance: FOLIC ACID
     Indication: Product used for unknown indication
     Dates: start: 20170124
  61. TROSPIUM CHLORIDE [Suspect]
     Active Substance: TROSPIUM CHLORIDE
     Indication: Product used for unknown indication
     Dates: start: 20170124
  62. TROSPIUM CHLORIDE [Suspect]
     Active Substance: TROSPIUM CHLORIDE
     Dosage: 15 MG, QD?ROUTE: UNKNOWN
     Dates: start: 20170124
  63. TROSPIUM CHLORIDE [Suspect]
     Active Substance: TROSPIUM CHLORIDE
     Indication: Product used for unknown indication
  64. RIOPAN [Concomitant]
     Indication: Product used for unknown indication
     Dosage: DAILY DOSE: 4800 MG MILLGRAM(S) EVERY DAYS
     Route: 048
  65. CANDESARTAN CILEXETIL\HYDROCHLOROTHIAZIDE [Suspect]
     Active Substance: CANDESARTAN CILEXETIL\HYDROCHLOROTHIAZIDE
     Indication: Product used for unknown indication
     Dosage: 1 DOSAGE FORM, QD?ROUTE: UNKNOWN
  66. PANTOPRAZOLE [Suspect]
     Active Substance: PANTOPRAZOLE
     Indication: Product used for unknown indication
     Dosage: 20 MG, QD
  67. PANTOPRAZOLE [Suspect]
     Active Substance: PANTOPRAZOLE
     Indication: Product used for unknown indication
  68. PANTOPRAZOLE [Suspect]
     Active Substance: PANTOPRAZOLE
     Dosage: 20 MG, QD
  69. PANTOPRAZOLE [Suspect]
     Active Substance: PANTOPRAZOLE
     Dosage: 20 MG, QD
  70. PANTOPRAZOLE [Suspect]
     Active Substance: PANTOPRAZOLE
     Dosage: 20 MG, QD
  71. PANTOPRAZOLE [Suspect]
     Active Substance: PANTOPRAZOLE
     Dosage: 20 MG, QD
  72. EDOXABAN TOSYLATE [Suspect]
     Active Substance: EDOXABAN TOSYLATE
     Indication: Atrial fibrillation
     Dosage: 30 MG, QD DAILY?ROUTE: UNKNOWN
  73. EDOXABAN TOSYLATE [Suspect]
     Active Substance: EDOXABAN TOSYLATE
     Dosage: 30 MG, QD DAILY?ROUTE: UNKNOWN
     Dates: start: 20160930
  74. EDOXABAN TOSYLATE [Suspect]
     Active Substance: EDOXABAN TOSYLATE
     Dosage: 30 MILLIGRAM, QD?ROUTE: UNKNOWN
  75. EDOXABAN TOSYLATE [Suspect]
     Active Substance: EDOXABAN TOSYLATE
     Dosage: 30 MG, QD?ROUTE: UNKNOWN
     Dates: start: 20160930
  76. ASPIRIN [Suspect]
     Active Substance: ASPIRIN
     Indication: Product used for unknown indication
  77. ASPIRIN [Suspect]
     Active Substance: ASPIRIN
  78. HYDROCHLOROTHIAZIDE\LOSARTAN [Suspect]
     Active Substance: HYDROCHLOROTHIAZIDE\LOSARTAN
     Indication: Product used for unknown indication
     Dosage: 1 DOSAGE FORM, QD, (100/25 MG)?START DATE: 2016?ROUTE: UNKNOWN
     Dates: start: 2016
  79. PREDNISOLONE [Suspect]
     Active Substance: PREDNISOLONE
     Indication: Product used for unknown indication
  80. PREDNISOLONE [Suspect]
     Active Substance: PREDNISOLONE
  81. TORSEMIDE [Suspect]
     Active Substance: TORSEMIDE
     Indication: Product used for unknown indication
     Dosage: 5 MILLIGRAM, QD?ROUTE: UNKNOWN
  82. TORSEMIDE [Suspect]
     Active Substance: TORSEMIDE
     Dosage: 15 MG, QD?ROUTE: UNKNOWN
     Dates: start: 20170124, end: 20170124
  83. TORSEMIDE [Suspect]
     Active Substance: TORSEMIDE
     Dosage: 5 MILLIGRAM, QD?ROUTE: UNKNOWN
     Dates: start: 20170124, end: 20170124
  84. TORSEMIDE [Suspect]
     Active Substance: TORSEMIDE
     Dosage: 15 MILLIGRAM, QD?ROUTE: UNKNOWN
  85. TORSEMIDE [Suspect]
     Active Substance: TORSEMIDE
     Dosage: 45 MG, QD
     Route: 050
     Dates: start: 20170124, end: 20170124
  86. HYDROCHLOROTHIAZIDE\LOSARTAN [Suspect]
     Active Substance: HYDROCHLOROTHIAZIDE\LOSARTAN
     Indication: Product used for unknown indication
  87. MOVICOL [Suspect]
     Active Substance: POLYETHYLENE GLYCOL 3350\POTASSIUM CHLORIDE\SODIUM BICARBONATE\SODIUM CHLORIDE
     Indication: Product used for unknown indication
     Dates: start: 20170124
  88. MOVICOL [Suspect]
     Active Substance: POLYETHYLENE GLYCOL 3350\POTASSIUM CHLORIDE\SODIUM BICARBONATE\SODIUM CHLORIDE
  89. MOVICOL [Suspect]
     Active Substance: POLYETHYLENE GLYCOL 3350\POTASSIUM CHLORIDE\SODIUM BICARBONATE\SODIUM CHLORIDE
     Dates: start: 20170124
  90. MOVICOL [Suspect]
     Active Substance: POLYETHYLENE GLYCOL 3350\POTASSIUM CHLORIDE\SODIUM BICARBONATE\SODIUM CHLORIDE
  91. MOVICOL [Suspect]
     Active Substance: POLYETHYLENE GLYCOL 3350\POTASSIUM CHLORIDE\SODIUM BICARBONATE\SODIUM CHLORIDE
     Dates: start: 20170124
  92. MOVICOL [Suspect]
     Active Substance: POLYETHYLENE GLYCOL 3350\POTASSIUM CHLORIDE\SODIUM BICARBONATE\SODIUM CHLORIDE
  93. MOVICOL [Suspect]
     Active Substance: POLYETHYLENE GLYCOL 3350\POTASSIUM CHLORIDE\SODIUM BICARBONATE\SODIUM CHLORIDE
  94. MOVICOL [Suspect]
     Active Substance: POLYETHYLENE GLYCOL 3350\POTASSIUM CHLORIDE\SODIUM BICARBONATE\SODIUM CHLORIDE
  95. MOVICOL [Suspect]
     Active Substance: POLYETHYLENE GLYCOL 3350\POTASSIUM CHLORIDE\SODIUM BICARBONATE\SODIUM CHLORIDE
  96. SIMVASTATIN [Suspect]
     Active Substance: SIMVASTATIN
     Indication: Product used for unknown indication
  97. MAGALDRATE [Concomitant]
     Active Substance: MAGALDRATE
     Indication: Product used for unknown indication
  98. MAGALDRATE [Concomitant]
     Active Substance: MAGALDRATE
  99. MAGALDRATE [Concomitant]
     Active Substance: MAGALDRATE
  100. MAGALDRATE [Concomitant]
     Active Substance: MAGALDRATE
  101. MAGALDRATE [Concomitant]
     Active Substance: MAGALDRATE
  102. MAGALDRATE [Concomitant]
     Active Substance: MAGALDRATE
  103. MAGALDRATE [Concomitant]
     Active Substance: MAGALDRATE
     Dosage: 1600 MG, QD
  104. MAGALDRATE [Concomitant]
     Active Substance: MAGALDRATE
  105. MAGALDRATE [Concomitant]
     Active Substance: MAGALDRATE
     Dosage: 4800 MILLIGRAM, QD
  106. MAGALDRATE [Concomitant]
     Active Substance: MAGALDRATE
  107. MAGALDRATE [Concomitant]
     Active Substance: MAGALDRATE
  108. CHOLECALCIFEROL [Suspect]
     Active Substance: CHOLECALCIFEROL
     Indication: Product used for unknown indication
     Dosage: 20000 IU, QW?ROUTE: UNKNOWN
  109. CHOLECALCIFEROL [Suspect]
     Active Substance: CHOLECALCIFEROL
     Dosage: 20000 IU, QW?ROUTE: UNKNOWN
  110. CLOPIDOGREL BISULFATE [Suspect]
     Active Substance: CLOPIDOGREL BISULFATE
     Indication: Product used for unknown indication
     Route: 048
     Dates: start: 20170124, end: 20170124
  111. CLOPIDOGREL BISULFATE [Suspect]
     Active Substance: CLOPIDOGREL BISULFATE
     Route: 050
  112. CLOPIDOGREL BISULFATE [Suspect]
     Active Substance: CLOPIDOGREL BISULFATE
     Route: 048
  113. CLOPIDOGREL BISULFATE [Suspect]
     Active Substance: CLOPIDOGREL BISULFATE
     Route: 048
  114. CLOPIDOGREL BISULFATE [Suspect]
     Active Substance: CLOPIDOGREL BISULFATE
     Route: 048
  115. CLOPIDOGREL BISULFATE [Suspect]
     Active Substance: CLOPIDOGREL BISULFATE
     Route: 048
  116. CLOPIDOGREL BISULFATE [Suspect]
     Active Substance: CLOPIDOGREL BISULFATE
     Route: 048
  117. FUROSEMIDE\SPIRONOLACTONE [Suspect]
     Active Substance: FUROSEMIDE\SPIRONOLACTONE
     Indication: Product used for unknown indication
  118. FUROSEMIDE\SPIRONOLACTONE [Suspect]
     Active Substance: FUROSEMIDE\SPIRONOLACTONE
     Dosage: UNK UNK, QD (50MG/20MG)?ROUTE: UNKNOWN?FIRST ADMIN DATE: 2016
     Dates: start: 201610, end: 201610
  119. FUROSEMIDE\SPIRONOLACTONE [Suspect]
     Active Substance: FUROSEMIDE\SPIRONOLACTONE
     Dosage: UNK UNK, QD (50MG/20MG)?ROUTE: UNKNOWN?FIRST AND LAST ADMIN DATE: 2016-10
  120. LACTULOSE [Suspect]
     Active Substance: LACTULOSE
     Indication: Product used for unknown indication
     Dates: start: 20170124, end: 20170124
  121. LACTULOSE [Suspect]
     Active Substance: LACTULOSE
     Dates: end: 20170124
  122. LACTULOSE [Suspect]
     Active Substance: LACTULOSE
     Dates: end: 20170124
  123. LACTULOSE [Suspect]
     Active Substance: LACTULOSE
     Dates: end: 20170124
  124. LACTULOSE [Suspect]
     Active Substance: LACTULOSE
     Dates: start: 20170124, end: 20170124
  125. LACTULOSE [Suspect]
     Active Substance: LACTULOSE
     Dates: end: 20170124
  126. LACTULOSE [Suspect]
     Active Substance: LACTULOSE
     Dates: start: 20170124, end: 20170124
  127. LACTULOSE [Suspect]
     Active Substance: LACTULOSE
     Dates: end: 20170124
  128. LACTULOSE [Suspect]
     Active Substance: LACTULOSE
     Dates: end: 20170124
  129. LACTULOSE [Suspect]
     Active Substance: LACTULOSE
     Dates: end: 20170124
  130. BISOPROLOL FUMARATE [Suspect]
     Active Substance: BISOPROLOL FUMARATE
     Indication: Product used for unknown indication
     Dosage: 0.5 MG, QD?ROUTE: UNKNOWN
     Dates: start: 2016
  131. BISOPROLOL FUMARATE [Suspect]
     Active Substance: BISOPROLOL FUMARATE
     Indication: Product used for unknown indication
     Dosage: 5 MG, QD?ROUTE: UNKNOWN
     Dates: start: 2016
  132. BISOPROLOL FUMARATE [Suspect]
     Active Substance: BISOPROLOL FUMARATE
     Dosage: 5 MG, QD
  133. BISOPROLOL FUMARATE [Suspect]
     Active Substance: BISOPROLOL FUMARATE
     Dosage: 5 MG, QD
  134. SODIUM CHLORIDE [Concomitant]
     Active Substance: SODIUM CHLORIDE
     Indication: Product used for unknown indication
     Dosage: 3 DOSAGE FORM, QD?ROUTE: UNKNOWN
  135. SODIUM CHLORIDE [Concomitant]
     Active Substance: SODIUM CHLORIDE
     Dosage: DAILY?ROUTE: UNKNOWN
  136. SODIUM CHLORIDE [Concomitant]
     Active Substance: SODIUM CHLORIDE
     Dosage: UNK, QD
  137. SODIUM CHLORIDE [Concomitant]
     Active Substance: SODIUM CHLORIDE
     Dosage: 1 DOSAGE FORM, QD
  138. SODIUM CHLORIDE [Concomitant]
     Active Substance: SODIUM CHLORIDE
     Dosage: UNK, QD
  139. SODIUM CHLORIDE [Concomitant]
     Active Substance: SODIUM CHLORIDE
     Dosage: UNK, QD
  140. SODIUM CHLORIDE [Concomitant]
     Active Substance: SODIUM CHLORIDE
     Dosage: UNK, QD
  141. SODIUM CHLORIDE [Concomitant]
     Active Substance: SODIUM CHLORIDE
     Dosage: UNK, QD
  142. SODIUM CHLORIDE [Concomitant]
     Active Substance: SODIUM CHLORIDE
  143. SODIUM CHLORIDE [Concomitant]
     Active Substance: SODIUM CHLORIDE
     Dosage: UNK, QD
  144. SODIUM CHLORIDE [Concomitant]
     Active Substance: SODIUM CHLORIDE
     Dosage: UNK, QD
  145. SODIUM CHLORIDE [Concomitant]
     Active Substance: SODIUM CHLORIDE
  146. SODIUM CHLORIDE [Concomitant]
     Active Substance: SODIUM CHLORIDE
     Dosage: UNK, QD
  147. SODIUM CHLORIDE [Concomitant]
     Active Substance: SODIUM CHLORIDE
     Dosage: UNK, QD
  148. SODIUM CHLORIDE [Concomitant]
     Active Substance: SODIUM CHLORIDE
     Dosage: UNK, QD
  149. SODIUM CHLORIDE [Concomitant]
     Active Substance: SODIUM CHLORIDE
  150. SODIUM CHLORIDE [Concomitant]
     Active Substance: SODIUM CHLORIDE
  151. VALSARTAN [Suspect]
     Active Substance: VALSARTAN
     Indication: Product used for unknown indication
  152. VALSARTAN [Suspect]
     Active Substance: VALSARTAN
  153. CORDAREX [Concomitant]
     Active Substance: AMIODARONE
     Indication: Product used for unknown indication
     Dosage: UNK
  154. CORDAREX [Concomitant]
     Active Substance: AMIODARONE
  155. CORDAREX [Concomitant]
     Active Substance: AMIODARONE
  156. CORDAREX [Concomitant]
     Active Substance: AMIODARONE
  157. CORDAREX [Concomitant]
     Active Substance: AMIODARONE
     Dosage: 200 MG, QD?ROUTE: UNKNOWN
  158. CORDAREX [Concomitant]
     Active Substance: AMIODARONE
  159. CORDAREX [Concomitant]
     Active Substance: AMIODARONE
  160. CORDAREX [Concomitant]
     Active Substance: AMIODARONE
  161. CORDAREX [Concomitant]
     Active Substance: AMIODARONE
  162. CORDAREX [Concomitant]
     Active Substance: AMIODARONE
  163. CORDAREX [Concomitant]
     Active Substance: AMIODARONE
  164. CORDAREX [Concomitant]
     Active Substance: AMIODARONE
  165. CORDAREX [Concomitant]
     Active Substance: AMIODARONE
  166. CORDAREX [Concomitant]
     Active Substance: AMIODARONE
  167. CORDAREX [Concomitant]
     Active Substance: AMIODARONE
  168. CORDAREX [Concomitant]
     Active Substance: AMIODARONE
  169. CORDAREX [Concomitant]
     Active Substance: AMIODARONE
  170. CORDAREX [Concomitant]
     Active Substance: AMIODARONE
  171. ENOXAPARIN [Concomitant]
     Active Substance: ENOXAPARIN
     Indication: Product used for unknown indication
     Dosage: 5 MG, QD
  172. ENOXAPARIN [Concomitant]
     Active Substance: ENOXAPARIN
     Dosage: 0.6 MG, QD?ROUTE: UNKNOWN
  173. ENOXAPARIN [Concomitant]
     Active Substance: ENOXAPARIN
     Dosage: 0.5 MG, QD
  174. ENOXAPARIN [Concomitant]
     Active Substance: ENOXAPARIN
     Dosage: 0.6 MG, QD
  175. ENOXAPARIN [Concomitant]
     Active Substance: ENOXAPARIN
     Dosage: 5 MG, QD
  176. ENOXAPARIN [Concomitant]
     Active Substance: ENOXAPARIN
     Dosage: 0.6 MG, QD?ROUTE: UNKNOWN
  177. ENOXAPARIN [Concomitant]
     Active Substance: ENOXAPARIN
  178. HUMIRA [Suspect]
     Active Substance: ADALIMUMAB
     Indication: Rheumatoid arthritis
     Dosage: 40 MG, EVERY 2 WEEKS?LAST ADMIN DATE: 2016-09-27?DURATION: 1631
     Route: 058
     Dates: start: 20120411, end: 20160927
  179. HUMIRA [Suspect]
     Active Substance: ADALIMUMAB
     Dosage: ONE DOSAGE FORM, EVERY TWO WEEKS
     Route: 058
     Dates: start: 20161115
  180. HUMIRA [Suspect]
     Active Substance: ADALIMUMAB
     Dosage: 40 MG, QW
     Route: 058
     Dates: start: 20161115
  181. HUMIRA [Suspect]
     Active Substance: ADALIMUMAB
     Dosage: 1 DOSAGE FORM, BIW (2 DF, QW)?ROUTE: UNKNOWN
     Dates: start: 20161115
  182. HUMIRA [Suspect]
     Active Substance: ADALIMUMAB
     Dosage: ONCE A WEEK?LAST ADMIN DATE: 2016-09-27?DURATION: 1631
     Route: 058
     Dates: start: 20161115
  183. HUMIRA [Suspect]
     Active Substance: ADALIMUMAB
     Dosage: 1 DF, 1 DOSAGE FORM, BIW (2 DF, QW)?ROUTE: UNKNOWN
     Route: 058
     Dates: start: 20161115
  184. HUMIRA [Suspect]
     Active Substance: ADALIMUMAB
     Route: 058
     Dates: start: 20161115
  185. HUMIRA [Suspect]
     Active Substance: ADALIMUMAB
     Dosage: 1 DOSAGE FORM, Q2W
     Route: 058
     Dates: start: 20160927
  186. HUMIRA [Suspect]
     Active Substance: ADALIMUMAB
     Dosage: 1 DOSAGE FORM, Q2W
     Route: 058
     Dates: start: 20160927
  187. HUMIRA [Suspect]
     Active Substance: ADALIMUMAB
     Route: 058
     Dates: start: 20161115
  188. HUMIRA [Suspect]
     Active Substance: ADALIMUMAB
     Dosage: LAST ADMIN DATE:2016-09-27?DURATION:1631?40 MG, QW
     Route: 058
     Dates: start: 20120411, end: 20160927
  189. HUMIRA [Suspect]
     Active Substance: ADALIMUMAB
     Dosage: ONCE A WEEK?LAST ADMIN DATE: 2016-09-27?DURATION: 1722
     Route: 058
     Dates: start: 20120111
  190. HUMIRA [Suspect]
     Active Substance: ADALIMUMAB
     Route: 058
     Dates: start: 20120111
  191. HUMIRA [Suspect]
     Active Substance: ADALIMUMAB
     Dosage: 2 DOSAGE FORM, BIW (4DF,QW)?LAST ADMIN DATE: 2016-09-27?DURATION: 1722
     Route: 058
     Dates: start: 20120111, end: 20160927
  192. HUMIRA [Suspect]
     Active Substance: ADALIMUMAB
     Dosage: ONCE A WEEK?LAST ADMIN DATE: 2016-09-27?DURATION: 1722
     Route: 058
     Dates: start: 20120111
  193. HUMIRA [Suspect]
     Active Substance: ADALIMUMAB
     Dosage: 40 MILLIGRAM, Q2W?LAST ADMIN DATE: 2016-09-27?DURATION: 1722
     Route: 058
     Dates: start: 20120111
  194. HUMIRA [Suspect]
     Active Substance: ADALIMUMAB
     Dosage: 2 DOSAGE FORM, BIW (4DF,QW)?LAST ADMIN DATE: 2016-09-27?DURATION: 1722?ROUTE: SUBDERMAL
     Dates: start: 20120111
  195. HUMIRA [Suspect]
     Active Substance: ADALIMUMAB
     Dosage: 2 DOSAGE FORM, BIW (4DF,QW)?LAST ADMIN DATE: 2016-09-27?DURATION: 1722
     Route: 058
     Dates: start: 20120111
  196. DICLOFENAC [Suspect]
     Active Substance: DICLOFENAC
     Indication: Product used for unknown indication
  197. DICLOFENAC [Suspect]
     Active Substance: DICLOFENAC
  198. DICLOFENAC [Suspect]
     Active Substance: DICLOFENAC
  199. DICLOFENAC [Suspect]
     Active Substance: DICLOFENAC
  200. DICLOFENAC [Suspect]
     Active Substance: DICLOFENAC
  201. DICLOFENAC [Suspect]
     Active Substance: DICLOFENAC
  202. DICLOFENAC [Suspect]
     Active Substance: DICLOFENAC
  203. DICLOFENAC [Suspect]
     Active Substance: DICLOFENAC
  204. DICLOFENAC [Suspect]
     Active Substance: DICLOFENAC
  205. DICLOFENAC [Suspect]
     Active Substance: DICLOFENAC
     Dosage: 2 DOSAGE FORM, QD?FIRST ADMIN DATE: 2016-10?ROUTE: UNKNOWN
  206. DICLOFENAC [Suspect]
     Active Substance: DICLOFENAC
  207. DICLOFENAC [Suspect]
     Active Substance: DICLOFENAC
  208. DICLOFENAC [Suspect]
     Active Substance: DICLOFENAC
  209. DICLOFENAC [Suspect]
     Active Substance: DICLOFENAC
  210. NADROPARIN CALCIUM [Concomitant]
     Active Substance: NADROPARIN CALCIUM
     Indication: Product used for unknown indication
     Dosage: 5700 IU, QD, SUBDERMAL
     Route: 058
  211. NADROPARIN CALCIUM [Concomitant]
     Active Substance: NADROPARIN CALCIUM
     Dosage: 5700 IU, QD, SUBDERMAL
  212. NADROPARIN CALCIUM [Concomitant]
     Active Substance: NADROPARIN CALCIUM
  213. NADROPARIN CALCIUM [Concomitant]
     Active Substance: NADROPARIN CALCIUM
     Dosage: 5700 IU, QD
     Route: 058
  214. NADROPARIN CALCIUM [Concomitant]
     Active Substance: NADROPARIN CALCIUM
  215. NADROPARIN CALCIUM [Concomitant]
     Active Substance: NADROPARIN CALCIUM
  216. NADROPARIN CALCIUM [Concomitant]
     Active Substance: NADROPARIN CALCIUM
  217. NADROPARIN CALCIUM [Concomitant]
     Active Substance: NADROPARIN CALCIUM
  218. NADROPARIN CALCIUM [Concomitant]
     Active Substance: NADROPARIN CALCIUM
  219. NADROPARIN CALCIUM [Concomitant]
     Active Substance: NADROPARIN CALCIUM
     Dosage: 5700 IU, QD
     Route: 058
  220. NADROPARIN CALCIUM [Concomitant]
     Active Substance: NADROPARIN CALCIUM
  221. FENTANYL [Suspect]
     Active Substance: FENTANYL
     Indication: Product used for unknown indication
     Route: 062
  222. FENTANYL [Suspect]
     Active Substance: FENTANYL
     Route: 062
  223. FENTANYL [Suspect]
     Active Substance: FENTANYL
     Route: 062
  224. FENTANYL [Suspect]
     Active Substance: FENTANYL
     Route: 062
  225. FENTANYL [Suspect]
     Active Substance: FENTANYL
     Route: 062
  226. XIPAMIDE [Suspect]
     Active Substance: XIPAMIDE
     Indication: Product used for unknown indication
     Dates: end: 20170124
  227. XIPAMIDE [Suspect]
     Active Substance: XIPAMIDE
     Dates: end: 20170124
  228. XIPAMIDE [Suspect]
     Active Substance: XIPAMIDE
     Dates: end: 20170124
  229. XIPAMIDE [Suspect]
     Active Substance: XIPAMIDE
  230. XIPAMIDE [Suspect]
     Active Substance: XIPAMIDE
     Dates: start: 20170124
  231. TROSPIUM CHLORIDE [Suspect]
     Active Substance: TROSPIUM CHLORIDE
     Indication: Product used for unknown indication
     Dosage: 45 MG, QD
     Dates: start: 20170124, end: 20170124
  232. TROSPIUM CHLORIDE [Suspect]
     Active Substance: TROSPIUM CHLORIDE
     Dosage: 15 MG, QD
     Dates: start: 20170124, end: 20170124
  233. TORSEMIDE [Suspect]
     Active Substance: TORSEMIDE
     Indication: Product used for unknown indication
     Dosage: 5 MG, QD
     Route: 050
     Dates: start: 20170124, end: 20170124
  234. TORSEMIDE [Suspect]
     Active Substance: TORSEMIDE
     Dosage: 1 DOSAGE FORM, QD
  235. TORSEMIDE [Suspect]
     Active Substance: TORSEMIDE
     Dosage: UNK UNK, QD,( DOSE: 1, 1X/DAY)
  236. RIOPAN [Concomitant]
     Indication: Product used for unknown indication
     Dosage: 1600 MG, QD
     Route: 048
  237. RIOPAN [Concomitant]
     Dosage: 4800 MG, QD
     Route: 048
  238. HYDROCHLOROTHIAZIDE\LOSARTAN POTASSIUM [Suspect]
     Active Substance: HYDROCHLOROTHIAZIDE\LOSARTAN POTASSIUM
     Indication: Product used for unknown indication
     Dosage: 1 DF, QD?ROUTE: UNKNOWN
     Dates: start: 2016
  239. HYDROCHLOROTHIAZIDE\LOSARTAN POTASSIUM [Suspect]
     Active Substance: HYDROCHLOROTHIAZIDE\LOSARTAN POTASSIUM
     Dosage: 1 DOSAGE FORM, QD?ROUTE: UNKNOWN
  240. HYDROCHLOROTHIAZIDE\LOSARTAN POTASSIUM [Suspect]
     Active Substance: HYDROCHLOROTHIAZIDE\LOSARTAN POTASSIUM
     Dosage: UNK, UNK, QD (100/25 MG)?ROUTE: UNKNOWN?FIRST ADMIN DATE: 2016
  241. TROSPIUM CHLORIDE [Suspect]
     Active Substance: TROSPIUM CHLORIDE
     Indication: Product used for unknown indication
     Dosage: 15 MG, QD
     Dates: start: 20170124, end: 20170124
  242. CERISA [Suspect]
     Active Substance: SULFACETAMIDE SODIUM\SULFUR
     Indication: Product used for unknown indication
  243. CERISA [Suspect]
     Active Substance: SULFACETAMIDE SODIUM\SULFUR
     Dates: start: 20170124
  244. TORSEMIDE [Suspect]
     Active Substance: TORSEMIDE
     Indication: Product used for unknown indication
     Dosage: 5 MG, QD
     Route: 050
  245. TORSEMIDE [Suspect]
     Active Substance: TORSEMIDE
     Dosage: 45 MG, QD
     Dates: start: 20170124, end: 20170124
  246. TORSEMIDE [Suspect]
     Active Substance: TORSEMIDE
     Dosage: 1 DF, QD
     Route: 050
  247. METOPROLOL SUCCINATE [Suspect]
     Active Substance: METOPROLOL SUCCINATE
     Indication: Product used for unknown indication
     Route: 050
     Dates: start: 20170124, end: 20170124
  248. METOPROLOL SUCCINATE [Suspect]
     Active Substance: METOPROLOL SUCCINATE
     Dates: start: 20170124
  249. LOSARTAN [Suspect]
     Active Substance: LOSARTAN
     Indication: Product used for unknown indication
  250. LOSARTAN [Suspect]
     Active Substance: LOSARTAN
     Dosage: 1 DOSAGE FORM, QD?FIRST ADMIN DATE: 2016?ROUTE: UNKNOWN
  251. TROSPIUM CHLORIDE [Suspect]
     Active Substance: TROSPIUM CHLORIDE
     Indication: Product used for unknown indication
     Dosage: 45 MG, QD
     Route: 050
     Dates: start: 20170124, end: 20170124
  252. TROSPIUM CHLORIDE [Suspect]
     Active Substance: TROSPIUM CHLORIDE
     Dosage: 15 MILLIGRAM, QD?ROUTE: UNKNOWN
  253. TROSPIUM CHLORIDE [Suspect]
     Active Substance: TROSPIUM CHLORIDE
     Dosage: 45 MG, QD
     Route: 050
     Dates: start: 20170124, end: 20170124
  254. TROSPIUM CHLORIDE [Suspect]
     Active Substance: TROSPIUM CHLORIDE
     Dosage: 15 MG, QD?ROUTE: UNKNOWN
     Dates: start: 20170124, end: 20170124
  255. TROSPIUM CHLORIDE [Suspect]
     Active Substance: TROSPIUM CHLORIDE
  256. TROSPIUM CHLORIDE [Suspect]
     Active Substance: TROSPIUM CHLORIDE
  257. TROSPIUM CHLORIDE [Suspect]
     Active Substance: TROSPIUM CHLORIDE
     Dosage: 15 MILLIGRAM, QD?ROUTE: UNKNOWN

REACTIONS (55)
  - Anuria [Recovered/Resolved]
  - Tricuspid valve incompetence [Unknown]
  - Faecaloma [Unknown]
  - Escherichia infection [Unknown]
  - Cardiovascular disorder [Unknown]
  - Acute kidney injury [Unknown]
  - Arterial haemorrhage [Recovered/Resolved]
  - Arthralgia [Unknown]
  - Groin pain [Unknown]
  - Inflammatory marker increased [Recovered/Resolved]
  - Eructation [Unknown]
  - Fall [Recovered/Resolved]
  - Vomiting [Unknown]
  - Aortic valve stenosis [Unknown]
  - Postoperative wound infection [Recovered/Resolved]
  - Dyspnoea [Unknown]
  - Diverticulum intestinal [Recovering/Resolving]
  - Abdominal discomfort [Unknown]
  - Cardiogenic shock [Unknown]
  - Coronary artery disease [Unknown]
  - Hyponatraemia [Unknown]
  - Femoral hernia incarcerated [Recovered/Resolved]
  - Aortic arteriosclerosis [Unknown]
  - Myocardial infarction [Recovered/Resolved]
  - Decreased appetite [Unknown]
  - Urinary retention [Unknown]
  - Impaired healing [Recovered/Resolved]
  - Hepatic cyst [Unknown]
  - Myelodysplastic syndrome [Unknown]
  - Hiatus hernia [Unknown]
  - Gait disturbance [Recovering/Resolving]
  - General physical health deterioration [Unknown]
  - Haemarthrosis [Unknown]
  - Wound dehiscence [Recovered/Resolved]
  - Hyperkalaemia [Unknown]
  - Lymphatic fistula [Recovered/Resolved]
  - Seroma [Unknown]
  - Osteopenia [Unknown]
  - Pancreatic steatosis [Unknown]
  - Left ventricular dysfunction [Recovered/Resolved]
  - Peripheral swelling [Recovered/Resolved]
  - Urinary tract infection [Recovering/Resolving]
  - Aplastic anaemia [Unknown]
  - Oedema peripheral [Unknown]
  - Wound infection pseudomonas [Recovering/Resolving]
  - Syncope [Unknown]
  - Mitral valve incompetence [Unknown]
  - Pulmonary hypertension [Recovering/Resolving]
  - Tachyarrhythmia [Unknown]
  - Anaemia [Recovered/Resolved]
  - Haematuria [Recovering/Resolving]
  - Joint dislocation [Recovered/Resolved]
  - Faecaloma [Unknown]
  - Dyspepsia [Unknown]
  - Gastrointestinal haemorrhage [Recovered/Resolved]

NARRATIVE: CASE EVENT DATE: 20160928
